FAERS Safety Report 6891215-1 (Version None)
Quarter: 2010Q3

REPORT INFORMATION
  Report Type: 
  Country: None (occurrence: None)
  Receive Date: 20100731
  Receipt Date: 20090625
  Transmission Date: 20110219
  Serious: No
  Sender: FDA-Public Use
  Company Number: US-PFIZER INC-2009233417

PATIENT
  Sex: Female
  Weight: 77.098 kg

DRUGS (3)
  1. LIPITOR [Suspect]
     Indication: BLOOD CHOLESTEROL ABNORMAL
     Dosage: 80 MG, 1X/DAY
     Route: 048
     Dates: end: 20090601
  2. POTASSIUM [Concomitant]
     Dosage: UNK
  3. THYROID [Concomitant]
     Dosage: UNK

REACTIONS (2)
  - FATIGUE [None]
  - PAIN [None]
